FAERS Safety Report 25872625 (Version 2)
Quarter: 2025Q4

REPORT INFORMATION
  Report Type: Spontaneous
  Country: CA (occurrence: CA)
  Receive Date: 20251002
  Receipt Date: 20251031
  Transmission Date: 20260117
  Serious: Yes (Hospitalization)
  Sender: CELLTRION
  Company Number: CA-PFIZER INC-202500177507

PATIENT

DRUGS (4)
  1. INFLECTRA [Suspect]
     Active Substance: INFLIXIMAB-DYYB
     Indication: Polyneuropathy
     Dosage: 1 DF, EVERY 4 WEEKS, (W0 RECEIVED IN HOSPITAL, DOSE UNKNOWN)
     Route: 042
     Dates: start: 20230209, end: 20230209
  2. INFLECTRA [Suspect]
     Active Substance: INFLIXIMAB-DYYB
     Indication: Neurosarcoidosis
     Dosage: 320 MG, (INDUCTION W 2,6 THEN MAINTENANCE Q4 WEEKS)
     Route: 042
     Dates: start: 20230302
  3. INFLECTRA [Suspect]
     Active Substance: INFLIXIMAB-DYYB
     Dosage: 1 DF, (320 MG) EVERY 4 WEEKS
     Route: 042
     Dates: start: 20250807, end: 20250807
  4. SULFATRIM [Concomitant]
     Active Substance: SULFAMETHOXAZOLE\TRIMETHOPRIM
     Dosage: UNK

REACTIONS (5)
  - Nasal ulcer [Unknown]
  - Cellulitis [Unknown]
  - Staphylococcal infection [Recovered/Resolved]
  - Fall [Unknown]
  - Injury [Recovering/Resolving]

NARRATIVE: CASE EVENT DATE: 20250101
